FAERS Safety Report 19941103 (Version 1)
Quarter: 2021Q4

REPORT INFORMATION
  Report Type: Spontaneous
  Country: FR (occurrence: FR)
  Receive Date: 20211011
  Receipt Date: 20211011
  Transmission Date: 20220303
  Serious: Yes (Hospitalization)
  Sender: FDA-Public Use
  Company Number: None

PATIENT
  Age: 73 Year
  Sex: Male
  Weight: 86 kg

DRUGS (12)
  1. INDAPAMIDE [Suspect]
     Active Substance: INDAPAMIDE
     Indication: Hypertension
     Dosage: 1.5 MILLIGRAM, QD
     Route: 048
     Dates: end: 20190402
  2. RILMENIDINE PHOSPHATE [Suspect]
     Active Substance: RILMENIDINE PHOSPHATE
     Indication: Hypertension
     Dosage: 2 DOSAGE FORM, QD
     Route: 048
     Dates: end: 20190402
  3. COVERAM [Suspect]
     Active Substance: AMLODIPINE\PERINDOPRIL
     Indication: Hypertension
     Dosage: 1 DOSAGE FORM, QD
     Route: 048
     Dates: end: 20190402
  4. FUROSEMIDE [Suspect]
     Active Substance: FUROSEMIDE
     Indication: Hypertension
     Dosage: 1 DOSAGE FORM, QD
     Route: 048
     Dates: start: 20171003
  5. PANTOPRAZOLE [Concomitant]
     Active Substance: PANTOPRAZOLE
     Dosage: UNK
  6. LEVOTHYROXINE [Concomitant]
     Active Substance: LEVOTHYROXINE
     Dosage: UNK
  7. ALLOPURINOL [Concomitant]
     Active Substance: ALLOPURINOL
     Dosage: UNK
  8. KARDEGIC [Concomitant]
     Active Substance: ASPIRIN DL-LYSINE
     Dosage: UNK
  9. INSULIN NOS [Concomitant]
     Active Substance: INSULIN NOS
     Dosage: UNK
  10. ARANESP [Concomitant]
     Active Substance: DARBEPOETIN ALFA
     Dosage: UNK
  11. TAHOR [Concomitant]
     Active Substance: ATORVASTATIN CALCIUM
     Dosage: UNK
  12. URAPIDIL [Concomitant]
     Active Substance: URAPIDIL
     Dosage: UNK

REACTIONS (1)
  - Acute kidney injury [Recovered/Resolved]

NARRATIVE: CASE EVENT DATE: 20190402
